FAERS Safety Report 20891498 (Version 4)
Quarter: 2022Q4

REPORT INFORMATION
  Report Type: Spontaneous
  Country: US (occurrence: US)
  Receive Date: 20220530
  Receipt Date: 20221019
  Transmission Date: 20230113
  Serious: Yes (Hospitalization, Other)
  Sender: FDA-Public Use
  Company Number: US-BIOVITRUM-2022US07140

PATIENT
  Age: 0 Year
  Sex: Female
  Weight: 3 kg

DRUGS (14)
  1. SYNAGIS [Suspect]
     Active Substance: PALIVIZUMAB
     Indication: Antiviral prophylaxis
     Dates: start: 20210920
  2. POLY-VITA WITH IRON [Concomitant]
     Dosage: 10 MG/ML DROPS
  3. PANTOPRAZOLE SODIUM [Concomitant]
     Active Substance: PANTOPRAZOLE SODIUM
     Dosage: 20 MG TABLET
  4. MIRALAX [Concomitant]
     Active Substance: POLYETHYLENE GLYCOL 3350
     Dosage: 17 G/DOSE POWDER
  5. PREDNISOLONE [Concomitant]
     Active Substance: PREDNISOLONE
     Dosage: 100 PERCENT
  6. SIMETHICONE (DIMETHICONE) [Concomitant]
     Active Substance: DIMETHICONE
     Dosage: 125 MG CAPSULE
  7. SODIUM CHLORIDE [Concomitant]
     Active Substance: SODIUM CHLORIDE
     Dosage: 3.5 % VIAL-NEB
  8. THEOPHYLLINE [Concomitant]
     Active Substance: THEOPHYLLINE
     Dosage: 400 MG TAB ER 24H
  9. ATROVENT HFA [Concomitant]
     Active Substance: IPRATROPIUM BROMIDE
  10. PULMOZYME [Concomitant]
     Active Substance: DORNASE ALFA
  11. HYDROCHLOROTHIAZIDE\SPIRONOLACTONE [Concomitant]
     Active Substance: HYDROCHLOROTHIAZIDE\SPIRONOLACTONE
  12. ALBUTEROL SULFATE [Concomitant]
     Active Substance: ALBUTEROL SULFATE
  13. SYNAGIS [Suspect]
     Active Substance: PALIVIZUMAB
     Indication: Premature baby
  14. MORPHINE SULPHATE 0.9 PERCENT NACL [Concomitant]

REACTIONS (6)
  - Ear infection [Recovered/Resolved]
  - Bronchopulmonary dysplasia [Unknown]
  - Increased bronchial secretion [Unknown]
  - Bronchospasm [Unknown]
  - Oxygen saturation abnormal [Unknown]
  - Cyanosis [Unknown]

NARRATIVE: CASE EVENT DATE: 20220427
